FAERS Safety Report 7594216-3 (Version None)
Quarter: 2011Q3

REPORT INFORMATION
  Report Type: 
  Country: None (occurrence: None)
  Receive Date: 20110706
  Receipt Date: 20110628
  Transmission Date: 20111222
  Serious: Yes (Hospitalization)
  Sender: FDA-Public Use
  Company Number: US-ABBOTT-11P-163-0835640-00

PATIENT
  Sex: Female
  Weight: 56.296 kg

DRUGS (7)
  1. VITAMIN B-12 [Concomitant]
     Indication: INTESTINAL RESECTION
  2. VITAMIN B-12 [Concomitant]
     Indication: CROHN'S DISEASE
  3. CALCIUM CARBONATE [Concomitant]
     Indication: MINERAL SUPPLEMENTATION
  4. VITAMIN D [Concomitant]
     Indication: VITAMIN SUPPLEMENTATION
  5. LOMOTIL [Concomitant]
     Indication: CROHN'S DISEASE
  6. HUMIRA [Suspect]
     Indication: CROHN'S DISEASE
     Dates: start: 20091201
  7. VITAMIN B-12 [Concomitant]
     Indication: VITAMIN B12 DEFICIENCY

REACTIONS (6)
  - INJECTION SITE PAIN [None]
  - DRUG INEFFECTIVE [None]
  - IMPAIRED HEALING [None]
  - INTESTINAL FISTULA [None]
  - ABDOMINAL ABSCESS [None]
  - FISTULA [None]
